FAERS Safety Report 25188361 (Version 1)
Quarter: 2025Q2

REPORT INFORMATION
  Report Type: Spontaneous
  Country: ES (occurrence: ES)
  Receive Date: 20250411
  Receipt Date: 20250411
  Transmission Date: 20250717
  Serious: Yes (Death, Hospitalization, Other)
  Sender: UNITED THERAPEUTICS
  Company Number: ES-UNITED THERAPEUTICS-UNT-2025-011776

PATIENT

DRUGS (8)
  1. REMODULIN [Suspect]
     Active Substance: TREPROSTINIL
     Indication: Heritable pulmonary arterial hypertension
  2. REMODULIN [Suspect]
     Active Substance: TREPROSTINIL
  3. REMODULIN [Suspect]
     Active Substance: TREPROSTINIL
  4. TADALAFIL [Concomitant]
     Active Substance: TADALAFIL
     Indication: Heritable pulmonary arterial hypertension
  5. AMBRISENTAN [Concomitant]
     Active Substance: AMBRISENTAN
     Indication: Heritable pulmonary arterial hypertension
  6. FUROSEMIDE [Concomitant]
     Active Substance: FUROSEMIDE
     Indication: Product used for unknown indication
  7. SPIRONOLACTONE [Concomitant]
     Active Substance: SPIRONOLACTONE
     Indication: Product used for unknown indication
  8. CHLORTHALIDONE [Concomitant]
     Active Substance: CHLORTHALIDONE
     Indication: Product used for unknown indication

REACTIONS (14)
  - Respiratory arrest [Fatal]
  - Cardiac failure congestive [Unknown]
  - Acute respiratory failure [Unknown]
  - Pulmonary arterial hypertension [Not Recovered/Not Resolved]
  - Atrial fibrillation [Unknown]
  - Chronic respiratory failure [Unknown]
  - Acute pulmonary oedema [Unknown]
  - Tricuspid valve incompetence [Unknown]
  - Mitral valve incompetence [Unknown]
  - Diastolic dysfunction [Unknown]
  - Hypertension [Unknown]
  - Dyslipidaemia [Unknown]
  - Obstructive sleep apnoea syndrome [Unknown]
  - Infusion site reaction [Unknown]
